FAERS Safety Report 10089353 (Version 2)
Quarter: 2014Q3

REPORT INFORMATION
  Report Type: Spontaneous
  Country: AU (occurrence: None)
  Receive Date: 20140417
  Receipt Date: 20140722
  Transmission Date: 20150326
  Serious: Yes (Hospitalization)
  Sender: FDA-Public Use
  Company Number: AUR-APL-2014-04599

PATIENT
  Age: 86 Year
  Sex: Female

DRUGS (2)
  1. AURO-QUETIPAINE [Suspect]
     Active Substance: QUETIAPINE FUMARATE
     Indication: PRODUCT USED FOR UNKNOWN INDICATION
     Dosage: 1 D
  2. THALOMID [Suspect]
     Active Substance: THALIDOMIDE
     Indication: PLASMA CELL MYELOMA
     Dosage: (100 MG,1 D),ORAL
     Route: 048
     Dates: start: 20120503, end: 20120611

REACTIONS (2)
  - Drug interaction [None]
  - Tremor [None]
